FAERS Safety Report 15826890 (Version 1)
Quarter: 2019Q1

REPORT INFORMATION
  Report Type: Report from Study
  Country: CA (occurrence: CA)
  Receive Date: 20190115
  Receipt Date: 20190115
  Transmission Date: 20190417
  Serious: Yes (Other)
  Sender: FDA-Public Use
  Company Number: CA-PFIZER INC-2016137135

PATIENT
  Age: 55 Year
  Sex: Male

DRUGS (7)
  1. METHOTREXATE SODIUM. [Suspect]
     Active Substance: METHOTREXATE SODIUM
     Dosage: 10 MG, WEEKLY (1EVERY 1 WEEK(S))
     Route: 048
     Dates: start: 200402
  2. MOBICOX [Concomitant]
     Active Substance: MELOXICAM
     Dosage: 15 UNK, QD (EVERY 1 DAYS)
     Route: 048
  3. VIOXX [Suspect]
     Active Substance: ROFECOXIB
     Dosage: 12.5 MG, QD (1 EVERY 1 DAYS)
     Route: 065
     Dates: start: 200308, end: 200410
  4. ENBREL [Suspect]
     Active Substance: ETANERCEPT
     Indication: ANKYLOSING SPONDYLITIS
     Dosage: 50 MG, EVERY SEVEN DAYS (1 EVERY 1 WEEK(S))
     Route: 058
     Dates: start: 20040401
  5. MOTRIN [Concomitant]
     Active Substance: IBUPROFEN
     Dosage: 600 UNK, TID (3 EVERY 1 DAYS)
  6. REMICADE [Suspect]
     Active Substance: INFLIXIMAB
     Dosage: 200 MG, EVERY EIGHT WEEKS
     Route: 042
     Dates: end: 200609
  7. METHOTREXATE SODIUM. [Suspect]
     Active Substance: METHOTREXATE SODIUM
     Dosage: 25 MG, WEEKLY (1EVERY 1 WEEK(S))
     Route: 058
     Dates: start: 201001

REACTIONS (5)
  - Iritis [Recovered/Resolved]
  - Rheumatoid arthritis [Recovered/Resolved]
  - Hypertension [Recovered/Resolved]
  - Drug ineffective [Recovered/Resolved]
  - Nervous system disorder [Recovered/Resolved]
